FAERS Safety Report 13163341 (Version 10)
Quarter: 2022Q1

REPORT INFORMATION
  Report Type: Spontaneous
  Country: US (occurrence: US)
  Receive Date: 20170130
  Receipt Date: 20220215
  Transmission Date: 20220423
  Serious: Yes (Other)
  Sender: FDA-Public Use
  Company Number: US-PFIZER INC-2016174359

PATIENT
  Age: 42 Year
  Sex: Male
  Weight: 84 kg

DRUGS (5)
  1. BENEFIX [Suspect]
     Active Substance: COAGULATION FACTOR IX RECOMBINANT HUMAN\ISOPROPYL ALCOHOL
     Indication: Factor IX deficiency
     Dosage: UNK
     Dates: start: 2008, end: 2008
  2. BENEFIX [Suspect]
     Active Substance: COAGULATION FACTOR IX RECOMBINANT HUMAN\ISOPROPYL ALCOHOL
     Dosage: UNK
     Dates: start: 2013
  3. BENEFIX [Suspect]
     Active Substance: COAGULATION FACTOR IX RECOMBINANT HUMAN\ISOPROPYL ALCOHOL
     Dosage: 4000 IU, (FOR MINOR INJURIES) 2X/WEEK OR AS DIRECTED (+/- 10% DOSE TO CLOSEST VIAL) OR AS DIRECTED
     Route: 042
  4. BENEFIX [Suspect]
     Active Substance: COAGULATION FACTOR IX RECOMBINANT HUMAN\ISOPROPYL ALCOHOL
     Dosage: 6000 IU (MAJOR INJURIES +/-10%, DOSE TO CLOSEST VIAL) TWICE WEEKLY/AS DIRECTED WITH MONTHLY 32000 IU
     Route: 042
  5. AMICAR [Concomitant]
     Active Substance: AMINOCAPROIC ACID
     Dosage: UNK

REACTIONS (10)
  - Haemorrhage [Recovered/Resolved]
  - Haemarthrosis [Recovered/Resolved]
  - Therapeutic response delayed [Unknown]
  - Haemorrhage [Recovered/Resolved]
  - Haemorrhage [Not Recovered/Not Resolved]
  - Road traffic accident [Unknown]
  - Fall [Unknown]
  - Tenderness [Unknown]
  - Swelling [Unknown]
  - Injury [Unknown]

NARRATIVE: CASE EVENT DATE: 20170112
